FAERS Safety Report 9102932 (Version 1)
Quarter: 2013Q1

REPORT INFORMATION
  Report Type: Spontaneous
  Country: US (occurrence: US)
  Receive Date: 20130218
  Receipt Date: 20130218
  Transmission Date: 20140127
  Serious: Yes (Hospitalization)
  Sender: FDA-Public Use
  Company Number: US-BAYER-2013-019579

PATIENT
  Age: 28 Year
  Sex: Female

DRUGS (5)
  1. YASMIN [Suspect]
     Indication: CONTRACEPTION
  2. XENADRINE RFA-1 [Concomitant]
     Indication: WEIGHT DECREASED
  3. FLAXSEED OIL [Concomitant]
  4. L-CAROTINE [Concomitant]
  5. I-TYROSINE [Concomitant]

REACTIONS (1)
  - Pulmonary embolism [None]
